FAERS Safety Report 4591512-9 (Version None)
Quarter: 2005Q1

REPORT INFORMATION
  Report Type: 
  Country: None (occurrence: None)
  Receive Date: 20050222
  Receipt Date: 20050209
  Transmission Date: 20050727
  Serious: Yes (Hospitalization, Disabling, Other)
  Sender: FDA-Public Use
  Company Number: 2005027607

PATIENT
  Sex: Female
  Weight: 45.3597 kg

DRUGS (2)
  1. CELEBREX [Suspect]
     Indication: ARTHRITIS
     Dosage: (200 MG,1 IN 1 D),ORAL;400 MG (200 MG,2 IN 1 D),ORAL
     Route: 048
  2. ALL OTHER NON-THERAPEUTIC PRODUCTS (ALL OTHER THERAPEUTIC PRODUCTS) [Concomitant]

REACTIONS (6)
  - DYSPNOEA [None]
  - FALL [None]
  - INTRACARDIAC THROMBUS [None]
  - JOINT INJURY [None]
  - MYOCARDIAL INFARCTION [None]
  - WEIGHT DECREASED [None]
